FAERS Safety Report 7510278-3 (Version None)
Quarter: 2011Q2

REPORT INFORMATION
  Report Type: 
  Country: None (occurrence: None)
  Receive Date: 20110527
  Receipt Date: 20110513
  Transmission Date: 20111010
  Serious: Yes (Other)
  Sender: FDA-Public Use
  Company Number: US-UCBSA-022316

PATIENT
  Sex: Female

DRUGS (11)
  1. KEPPRA XR [Suspect]
     Dosage: 3500 MG/DAY - 4000 MG/DAY
     Dates: start: 20101130, end: 20100101
  2. FOLIC ACID [Concomitant]
     Indication: PREGNANCY
     Route: 048
     Dates: start: 20100801
  3. KEPPRA XR [Suspect]
     Indication: EPILEPSY
     Dates: start: 20100818, end: 20100818
  4. KEPPRA XR [Suspect]
     Dates: start: 20100819, end: 20101022
  5. KEPPRA XR [Suspect]
     Dates: start: 20101207, end: 20100101
  6. KEPPRA XR [Suspect]
     Dates: start: 20101216
  7. KEPPRA [Suspect]
     Indication: EPILEPSY
     Dates: start: 20100428, end: 20110508
  8. KEPPRA XR [Suspect]
     Dates: start: 20101023, end: 20100101
  9. PRENATAL VITAMINS [Concomitant]
     Route: 048
  10. MULTI-VITAMINS [Concomitant]
     Indication: PREGNANCY
     Dosage: 6 PILLS ONCE DAILY
     Route: 048
  11. MULTI-VITAMINS [Concomitant]
     Indication: VITAMIN SUPPLEMENTATION
     Dosage: 6 PILLS ONCE DAILY
     Route: 048

REACTIONS (4)
  - PRE-ECLAMPSIA [None]
  - ANTICONVULSANT DRUG LEVEL INCREASED [None]
  - CONVULSION [None]
  - PREGNANCY [None]
